FAERS Safety Report 12130604 (Version 1)
Quarter: 2016Q1

REPORT INFORMATION
  Report Type: Other
  Country: GB (occurrence: GB)
  Receive Date: 20160301
  Receipt Date: 20160301
  Transmission Date: 20160526
  Serious: Yes (Death, Other)
  Sender: FDA-Public Use
  Company Number: GB-TARO PHARMACEUTICALS USA.,INC-2016SUN00124

PATIENT
  Age: 78 Year
  Sex: Female
  Weight: 39.5 kg

DRUGS (5)
  1. THIAMINE HYDROCHLORIDE. [Concomitant]
     Active Substance: THIAMINE HYDROCHLORIDE
     Dosage: 50 MG, QID
  2. WARFARIN [Suspect]
     Active Substance: WARFARIN
     Indication: ATRIAL FIBRILLATION
     Dosage: 7 MG, UNK
     Route: 048
     Dates: start: 20070213, end: 20160103
  3. FORTISIP [Concomitant]
     Active Substance: CARBOHYDRATES\FATTY ACIDS\MINERALS\PROTEIN\VITAMINS
     Dosage: 200 ML, BID (VIA PEG TUBE)
  4. BISOPROLOL [Concomitant]
     Active Substance: BISOPROLOL
     Dosage: 5 MG, QD
  5. NUTRISON [Concomitant]
     Indication: UNDERWEIGHT
     Dosage: 1000 ML, QD (VIA PEG TUBE)
     Dates: start: 20150710, end: 20160103

REACTIONS (3)
  - Upper gastrointestinal haemorrhage [Fatal]
  - Circulatory collapse [Not Recovered/Not Resolved]
  - Melaena [Not Recovered/Not Resolved]

NARRATIVE: CASE EVENT DATE: 20160102
